FAERS Safety Report 24330834 (Version 1)
Quarter: 2024Q3

REPORT INFORMATION
  Report Type: Spontaneous
  Country: DE (occurrence: DE)
  Receive Date: 20240918
  Receipt Date: 20240918
  Transmission Date: 20241017
  Serious: Yes (Hospitalization)
  Sender: SANDOZ
  Company Number: DE-SAMSUNG BIOEPIS-SB-2024-11499

PATIENT
  Age: 59 Year
  Sex: Male
  Weight: 82.2 kg

DRUGS (6)
  1. FLUOROURACIL [Suspect]
     Active Substance: FLUOROURACIL
     Indication: Oesophageal adenocarcinoma
     Dosage: 2600MG/M2, IV, D1/D15/D29/D43 PRE AND POST OPLAST DOSE PRIOR TO EVENT WAS ON 11 APR 2024
     Route: 042
     Dates: start: 20240327, end: 20240411
  2. DOCETAXEL [Suspect]
     Active Substance: DOCETAXEL\DOCETAXEL ANHYDROUS
     Indication: Oesophageal adenocarcinoma
     Dosage: 50MG/M2, IV, D1/D15/D29/D43 PRE AND POST OPLAST DOSE PRIOR TO EVENT WAS ON 11 APR 2024
     Route: 042
     Dates: start: 20240327, end: 20240411
  3. LEUCOVORIN [Suspect]
     Active Substance: LEUCOVORIN\LEUCOVORIN CALCIUM
     Indication: Oesophageal adenocarcinoma
     Dosage: 200MG/M2, IV, D1/D15/D29/D43 PRE AND POST OPLAST DOSE PRIOR TO EVENT WAS ON 11 APR 2024
     Route: 042
     Dates: start: 20240327, end: 20240411
  4. OXALIPLATIN [Suspect]
     Active Substance: OXALIPLATIN
     Indication: Oesophageal adenocarcinoma
     Dosage: 85MG/M2, IV, D1/D15/D29/D43 PRE AND POST OP.LAST DOSE PRIOR TO EVENT WAS ON 11 APR 2024
     Route: 042
     Dates: start: 20240327, end: 20240411
  5. PEMBROLIZUMAB [Suspect]
     Active Substance: PEMBROLIZUMAB
     Indication: Oesophageal adenocarcinoma
     Dosage: 200 MG FLAT DOSE, D1/D22/D43 PRE AND POST OP, AFTERWARDS D1 Q3W
     Route: 042
     Dates: start: 20240327
  6. TRASTUZUMAB [Suspect]
     Active Substance: TRASTUZUMAB
     Indication: Oesophageal adenocarcinoma
     Dosage: D1: 8MG/KG; 6MG/KG IV D22/D43 PRE AND POST OP, AFTERWARDS 6MG/KG IV D1 Q3W
     Route: 042
     Dates: start: 20240327

REACTIONS (1)
  - Pyrexia [Not Recovered/Not Resolved]

NARRATIVE: CASE EVENT DATE: 20240411
